FAERS Safety Report 19706328 (Version 1)
Quarter: 2021Q3

REPORT INFORMATION
  Report Type: Report from Study
  Country: None (occurrence: US)
  Receive Date: 20210817
  Receipt Date: 20210817
  Transmission Date: 20211014
  Serious: Yes (Other)
  Sender: FDA-Public Use
  Company Number: US-ABBVIE-21K-163-3904621-00

PATIENT
  Age: 50 Year
  Sex: Female
  Weight: 84.44 kg

DRUGS (7)
  1. NAPROXEN. [Concomitant]
     Active Substance: NAPROXEN
     Indication: ARTHRITIS
  2. HUMIRA [Suspect]
     Active Substance: ADALIMUMAB
     Dosage: CITRATE FREE
     Route: 058
  3. BENADRYL [Concomitant]
     Active Substance: DIPHENHYDRAMINE HYDROCHLORIDE
     Indication: PRURITUS
  4. HUMIRA [Suspect]
     Active Substance: ADALIMUMAB
     Indication: UVEITIS
     Dosage: CITRATE FREE
     Route: 058
     Dates: start: 202006, end: 20210628
  5. DOXEPIN [Concomitant]
     Active Substance: DOXEPIN
     Indication: NERVOUS SYSTEM DISORDER
  6. BENADRYL [Concomitant]
     Active Substance: DIPHENHYDRAMINE HYDROCHLORIDE
     Indication: URTICARIA
  7. DUREZOL [Concomitant]
     Active Substance: DIFLUPREDNATE
     Indication: EYE DISORDER

REACTIONS (6)
  - Intraocular lens implant [Recovered/Resolved]
  - Post procedural inflammation [Recovering/Resolving]
  - Arthralgia [Recovering/Resolving]
  - Cataract [Recovered/Resolved]
  - Vision blurred [Recovering/Resolving]
  - Eye laser scar [Recovering/Resolving]

NARRATIVE: CASE EVENT DATE: 20201208
